FAERS Safety Report 14405435 (Version 2)
Quarter: 2018Q1

REPORT INFORMATION
  Report Type: Spontaneous
  Country: US (occurrence: US)
  Receive Date: 20180118
  Receipt Date: 20180208
  Transmission Date: 20180509
  Serious: No
  Sender: FDA-Public Use
  Company Number: US-BRISTOL-MYERS SQUIBB COMPANY-BMS-2018-002592

PATIENT
  Age: 68 Year
  Sex: Female

DRUGS (1)
  1. OPDIVO [Suspect]
     Active Substance: NIVOLUMAB
     Indication: SQUAMOUS CELL CARCINOMA
     Dosage: 3 MG/KG, Q2WK
     Route: 042
     Dates: start: 20171208, end: 20171208

REACTIONS (10)
  - Musculoskeletal stiffness [Unknown]
  - Peripheral swelling [Unknown]
  - Limb discomfort [Unknown]
  - Blister [Unknown]
  - Joint swelling [Unknown]
  - Urticaria [Unknown]
  - Muscle spasms [Not Recovered/Not Resolved]
  - Pruritus [Unknown]
  - Musculoskeletal pain [Not Recovered/Not Resolved]
  - Pain in extremity [Not Recovered/Not Resolved]

NARRATIVE: CASE EVENT DATE: 20171220
